FAERS Safety Report 12561056 (Version 1)
Quarter: 2016Q3

REPORT INFORMATION
  Report Type: Spontaneous
  Country: US (occurrence: US)
  Receive Date: 20160715
  Receipt Date: 20160715
  Transmission Date: 20161109
  Serious: No
  Sender: FDA-Public Use
  Company Number: US-BEH-2016071167

PATIENT
  Sex: Female
  Weight: 98.87 kg

DRUGS (24)
  1. SIMVASTATIN. [Concomitant]
     Active Substance: SIMVASTATIN
  2. ZOLPIDEM [Concomitant]
     Active Substance: ZOLPIDEM\ZOLPIDEM TARTRATE
  3. MONTELUKAST [Concomitant]
     Active Substance: MONTELUKAST SODIUM
  4. ONDANSETRON [Concomitant]
     Active Substance: ONDANSETRON
  5. NASONEX [Concomitant]
     Active Substance: MOMETASONE FUROATE
  6. HIZENTRA [Suspect]
     Active Substance: HUMAN IMMUNOGLOBULIN G
     Indication: IMMUNODEFICIENCY COMMON VARIABLE
     Dosage: 12 G, QW
     Route: 058
  7. ACETAMINOPHEN. [Concomitant]
     Active Substance: ACETAMINOPHEN
  8. TRAMADOL. [Concomitant]
     Active Substance: TRAMADOL
  9. ADVAIR HFA [Concomitant]
     Active Substance: FLUTICASONE PROPIONATE\SALMETEROL XINAFOATE
  10. ALLOPURINOL. [Concomitant]
     Active Substance: ALLOPURINOL
  11. LORATADINE. [Concomitant]
     Active Substance: LORATADINE
  12. ATROVENT [Concomitant]
     Active Substance: IPRATROPIUM BROMIDE
  13. DIPHENHYDRAMINE. [Concomitant]
     Active Substance: DIPHENHYDRAMINE
  14. ASPIRIN (E.C.) [Concomitant]
     Active Substance: ASPIRIN
  15. DEPAKOTE [Concomitant]
     Active Substance: DIVALPROEX SODIUM
  16. LISINOPRIL. [Concomitant]
     Active Substance: LISINOPRIL
  17. LIDOCAINE. [Concomitant]
     Active Substance: LIDOCAINE
  18. PROAIR HFA [Concomitant]
     Active Substance: ALBUTEROL SULFATE
  19. INDAPAMIDE. [Concomitant]
     Active Substance: INDAPAMIDE
  20. METOPROLOL SUCCINATE. [Concomitant]
     Active Substance: METOPROLOL SUCCINATE
  21. VENLAFAXINE [Concomitant]
     Active Substance: VENLAFAXINE HYDROCHLORIDE
  22. PANTOPRAZOLE [Concomitant]
     Active Substance: PANTOPRAZOLE SODIUM
  23. OMEPRAZOLE. [Concomitant]
     Active Substance: OMEPRAZOLE
  24. POTASSIUM CITRATE. [Concomitant]
     Active Substance: POTASSIUM CITRATE

REACTIONS (1)
  - Upper respiratory tract infection [Unknown]
